FAERS Safety Report 11588203 (Version 1)
Quarter: 2015Q4

REPORT INFORMATION
  Report Type: Spontaneous
  Country: GR (occurrence: GR)
  Receive Date: 20151002
  Receipt Date: 20151002
  Transmission Date: 20160304
  Serious: Yes (Other)
  Sender: FDA-Public Use
  Company Number: GR-ROCHE-1640856

PATIENT
  Sex: Female

DRUGS (5)
  1. XELODA [Suspect]
     Active Substance: CAPECITABINE
     Indication: HEPATIC NEOPLASM
  2. AVASTIN [Suspect]
     Active Substance: BEVACIZUMAB
     Indication: BRAIN NEOPLASM
     Route: 065
  3. AVASTIN [Suspect]
     Active Substance: BEVACIZUMAB
     Indication: HEPATIC NEOPLASM
  4. CORTIZONE 10 [Concomitant]
     Active Substance: HYDROCORTISONE
  5. XELODA [Suspect]
     Active Substance: CAPECITABINE
     Indication: BRAIN NEOPLASM
     Route: 065

REACTIONS (4)
  - Balance disorder [Unknown]
  - Amnesia [Unknown]
  - Off label use [Unknown]
  - Leukoencephalopathy [Unknown]
